FAERS Safety Report 5263910-1 (Version None)
Quarter: 2007Q1

REPORT INFORMATION
  Report Type: 
  Country: None (occurrence: None)
  Receive Date: 20070313
  Receipt Date: 20070302
  Transmission Date: 20070707
  Serious: Yes (Death)
  Sender: FDA-Public Use
  Company Number: US-ELI_LILLY_AND_COMPANY-US200703000610

PATIENT
  Age: 68 Year
  Sex: Female

DRUGS (3)
  1. XIGRIS [Suspect]
     Indication: SEPSIS
     Route: 042
     Dates: start: 20070223
  2. LEVOPHED [Concomitant]
  3. NEXIUM [Concomitant]
     Indication: ULCER

REACTIONS (2)
  - HAEMORRHAGE [None]
  - POST PROCEDURAL HAEMORRHAGE [None]
